FAERS Safety Report 15119501 (Version 4)
Quarter: 2019Q1

REPORT INFORMATION
  Report Type: Spontaneous
  Country: US (occurrence: US)
  Receive Date: 20180709
  Receipt Date: 20190123
  Transmission Date: 20190417
  Serious: No
  Sender: FDA-Public Use
  Company Number: US-PFIZER INC-2017538283

PATIENT
  Age: 43 Year
  Sex: Female

DRUGS (6)
  1. HERCEPTIN [Concomitant]
     Active Substance: TRASTUZUMAB
     Indication: CHEMOTHERAPY
     Dosage: UNK
  2. TAXOTERE [Suspect]
     Active Substance: DOCETAXEL
     Indication: BREAST CANCER FEMALE
     Dosage: 160 MG, CYCLIC (3 CYCLES, EVERY THREE WEEKS)
     Dates: start: 20140625
  3. TAXOTERE [Suspect]
     Active Substance: DOCETAXEL
     Dosage: 160 MG, CYCLIC (2 CYCLES, EVERY THREE WEEKS)
     Dates: start: 20141126, end: 20141217
  4. DOCETAXEL. [Suspect]
     Active Substance: DOCETAXEL
     Indication: BREAST CANCER FEMALE
     Dosage: 160 MG, CYCLIC (3 CYCLES, EVERY THREE WEEKS)
     Dates: start: 20140625
  5. DOCETAXEL. [Suspect]
     Active Substance: DOCETAXEL
     Dosage: 160 MG, CYCLIC (2 CYCLES, EVERY THREE WEEKS)
     Dates: start: 20141126, end: 20141217
  6. TAMOXIFEN [Concomitant]
     Active Substance: TAMOXIFEN
     Indication: HORMONE THERAPY
     Dosage: UNK
     Dates: start: 2014

REACTIONS (5)
  - Madarosis [Not Recovered/Not Resolved]
  - Hair disorder [Not Recovered/Not Resolved]
  - Alopecia [Not Recovered/Not Resolved]
  - Hair colour changes [Not Recovered/Not Resolved]
  - Hair texture abnormal [Not Recovered/Not Resolved]

NARRATIVE: CASE EVENT DATE: 2015
